FAERS Safety Report 7542855-8 (Version None)
Quarter: 2011Q2

REPORT INFORMATION
  Report Type: 
  Country: None (occurrence: None)
  Receive Date: 20110613
  Receipt Date: 20110609
  Transmission Date: 20111010
  Serious: Yes (Other)
  Sender: FDA-Public Use
  Company Number: US-PFIZER INC-2011101071

PATIENT
  Sex: Male
  Weight: 74.83 kg

DRUGS (2)
  1. TIKOSYN [Suspect]
     Indication: ATRIAL FIBRILLATION
     Dosage: 0.125 MG, 1X/DAY
     Dates: start: 20110416
  2. TIKOSYN [Suspect]
     Dosage: 0.125 MG, DAILY
     Route: 048
     Dates: start: 20110416

REACTIONS (5)
  - HEADACHE [None]
  - NEURITIS [None]
  - MIGRAINE [None]
  - DIZZINESS [None]
  - CHEST PAIN [None]
